FAERS Safety Report 24417972 (Version 3)
Quarter: 2024Q4

REPORT INFORMATION
  Report Type: Spontaneous
  Country: CN (occurrence: CN)
  Receive Date: 20241009
  Receipt Date: 20241122
  Transmission Date: 20250114
  Serious: Yes (Hospitalization, Other)
  Sender: GLAXOSMITHKLINE
  Company Number: CN-GSK-CN2024APC121645

PATIENT

DRUGS (3)
  1. SERETIDE [Suspect]
     Active Substance: FLUTICASONE PROPIONATE\SALMETEROL XINAFOATE
     Indication: Chronic obstructive pulmonary disease
     Dosage: UNK, BID (1 DOSE) 60 DOSES
     Route: 055
     Dates: end: 202404
  2. TRELEGY ELLIPTA [Suspect]
     Active Substance: FLUTICASONE FUROATE\UMECLIDINIUM BROMIDE\VILANTEROL TRIFENATATE
     Indication: Chronic obstructive pulmonary disease
     Dosage: UNK,(1 DOSE) 30 DOSES
     Route: 055
     Dates: start: 202404
  3. YI LUN PING [Concomitant]
     Indication: Hypertension
     Dosage: 1 DF, QD
     Route: 048

REACTIONS (8)
  - Drug ineffective [Unknown]
  - Hospitalisation [Unknown]
  - Hypoxia [Unknown]
  - Nasopharyngitis [Recovered/Resolved]
  - Gait inability [Unknown]
  - Dyspnoea [Unknown]
  - General physical health deterioration [Unknown]
  - Drug effect less than expected [Unknown]

NARRATIVE: CASE EVENT DATE: 20231001
